FAERS Safety Report 26212188 (Version 1)
Quarter: 2025Q4

REPORT INFORMATION
  Report Type: Spontaneous
  Country: US (occurrence: US)
  Receive Date: 20251230
  Receipt Date: 20251230
  Transmission Date: 20260117
  Serious: Yes (Other)
  Sender: BAXTER
  Company Number: US-MLMSERVICE-20251217-PI753377-00201-1

PATIENT
  Age: 59 Year
  Sex: Female

DRUGS (1)
  1. LIDOCAINE [Suspect]
     Active Substance: LIDOCAINE
     Indication: Extrasystoles
     Dosage: 100 MG
     Route: 042

REACTIONS (1)
  - Bundle branch block left [Recovered/Resolved]
